FAERS Safety Report 7229722-4 (Version None)
Quarter: 2011Q1

REPORT INFORMATION
  Report Type: 
  Country: None (occurrence: None)
  Receive Date: 20110117
  Receipt Date: 20110103
  Transmission Date: 20110831
  Serious: Yes (Hospitalization)
  Sender: FDA-Public Use
  Company Number: FR-BAYER-2011-004478

PATIENT
  Age: 37 Year
  Sex: Male

DRUGS (3)
  1. SYNACTHEN [TETRACOSACTIDE] [Suspect]
     Indication: NERVE ROOT LESION
  2. ASPIRINE PROTECT [Suspect]
     Indication: ANTIPLATELET THERAPY
  3. SYNACTHEN [TETRACOSACTIDE] [Suspect]
     Indication: INTERVERTEBRAL DISC PROTRUSION
     Route: 030

REACTIONS (2)
  - ADRENAL HAEMORRHAGE [None]
  - BACK PAIN [None]
